FAERS Safety Report 18351996 (Version 2)
Quarter: 2020Q4

REPORT INFORMATION
  Report Type: Spontaneous
  Country: GB (occurrence: GB)
  Receive Date: 20201007
  Receipt Date: 20201223
  Transmission Date: 20210114
  Serious: Yes (Other)
  Sender: FDA-Public Use
  Company Number: GB-REGENERON PHARMACEUTICALS, INC.-2020-51749

PATIENT

DRUGS (3)
  1. EYLEA [Suspect]
     Active Substance: AFLIBERCEPT
     Indication: RETINAL VEIN OCCLUSION
     Dosage: 1 DF, ONCE; RIGHT EYE - 1ST DOSE
     Route: 031
     Dates: start: 20200616, end: 20200616
  2. EYLEA [Suspect]
     Active Substance: AFLIBERCEPT
     Dosage: 1 DF, ONCE; RIGHT EYE - 3RD DOSE
     Route: 031
     Dates: start: 20200811, end: 20200811
  3. EYLEA [Suspect]
     Active Substance: AFLIBERCEPT
     Dosage: 1 DF, ONCE;  RIGHT EYE - 2ND DOSE
     Dates: start: 20200714, end: 20200714

REACTIONS (6)
  - Device use issue [Unknown]
  - Wound secretion [Recovered/Resolved]
  - Intraocular pressure increased [Recovered/Resolved]
  - Intraocular pressure increased [Recovered/Resolved]
  - Intraocular pressure decreased [Recovered/Resolved]
  - Intraocular pressure decreased [Recovered/Resolved]

NARRATIVE: CASE EVENT DATE: 20200714
